FAERS Safety Report 12716955 (Version 6)
Quarter: 2016Q4

REPORT INFORMATION
  Report Type: Spontaneous
  Country: JP (occurrence: JP)
  Receive Date: 20160906
  Receipt Date: 20161201
  Transmission Date: 20170207
  Serious: Yes (Other)
  Sender: FDA-Public Use
  Company Number: JP-PFIZER INC-2016415949

PATIENT
  Age: 49 Year
  Sex: Female
  Weight: 40 kg

DRUGS (20)
  1. GASMOTIN [Concomitant]
     Active Substance: MOSAPRIDE CITRATE
     Dosage: UNK
  2. FOSPHENYTOIN SODIUM. [Suspect]
     Active Substance: FOSPHENYTOIN SODIUM
     Dosage: 325 MG, 1X/DAY
     Route: 041
     Dates: start: 20160728, end: 20160802
  3. GASCON [Concomitant]
     Active Substance: DIMETHICONE
     Dosage: UNK
  4. TAZOBACTAM SODIUM/PIPERACILLIN SODIUM [Concomitant]
     Active Substance: PIPERACILLIN SODIUM\TAZOBACTAM SODIUM
     Indication: PNEUMONIA
     Dosage: 4 G, 4X/DAY
     Route: 041
     Dates: start: 20160811, end: 20160820
  5. HORIZON [Concomitant]
     Active Substance: DIAZEPAM
     Dosage: UNK
  6. FOSPHENYTOIN SODIUM. [Suspect]
     Active Substance: FOSPHENYTOIN SODIUM
     Indication: STATUS EPILEPTICUS
     Dosage: 750 MG, 1X/DAY
     Route: 041
     Dates: start: 20151125, end: 20151125
  7. PANTOL [Concomitant]
     Active Substance: DEXPANTHENOL
     Indication: ILEUS
     Dosage: 1 G, 1X/DAY
     Route: 041
     Dates: start: 20160811, end: 20160819
  8. URSO [Concomitant]
     Active Substance: URSODIOL
     Dosage: UNK
  9. ALEVIATIN [Concomitant]
     Active Substance: PHENYTOIN SODIUM
     Dosage: UNK
  10. FOSPHENYTOIN SODIUM. [Suspect]
     Active Substance: FOSPHENYTOIN SODIUM
     Dosage: 325 MG, 1X/DAY
     Route: 041
     Dates: start: 20160812, end: 20160815
  11. DEPAKENE [Concomitant]
     Active Substance: VALPROIC ACID
     Dosage: UNK
  12. MYSTAN [Concomitant]
     Active Substance: CLOBAZAM
     Dosage: UNK
  13. SOLDEM 3A [Concomitant]
     Active Substance: CARBOHYDRATES\POTASSIUM CHLORIDE\SODIUM CHLORIDE\SODIUM LACTATE
     Dosage: UNK
  14. METHYCOBAL [Concomitant]
     Active Substance: METHYLCOBALAMIN
     Dosage: UNK
  15. MEROPEN [Concomitant]
     Active Substance: MEROPENEM
     Dosage: UNK
  16. TERPERAN [Concomitant]
     Active Substance: METOCLOPRAMIDE HYDROCHLORIDE
     Indication: ILEUS
     Dosage: 20 MG, 1X/DAY
     Route: 041
     Dates: start: 20160811, end: 20160816
  17. GLYCYRON [Concomitant]
     Active Substance: AMMONIUM GLYCYRRHIZATE\GLYCINE\METHIONINE
     Dosage: UNK
  18. FOSPHENYTOIN SODIUM. [Suspect]
     Active Substance: FOSPHENYTOIN SODIUM
     Dosage: 325 MG, 1X/DAY
     Route: 041
     Dates: start: 20151126, end: 20151209
  19. LANSOPRAZOLE. [Concomitant]
     Active Substance: LANSOPRAZOLE
     Dosage: UNK
  20. SENNOSIDE [Concomitant]
     Active Substance: SENNOSIDES
     Dosage: UNK

REACTIONS (1)
  - Neutrophil count decreased [Recovered/Resolved]

NARRATIVE: CASE EVENT DATE: 20160815
